FAERS Safety Report 5269579-4 (Version None)
Quarter: 2007Q1

REPORT INFORMATION
  Report Type: 
  Country: None (occurrence: None)
  Receive Date: 20070314
  Receipt Date: 20070226
  Transmission Date: 20070707
  Serious: Yes (Hospitalization)
  Sender: FDA-Public Use
  Company Number: 8020842

PATIENT
  Sex: Female

DRUGS (2)
  1. KEPPRA [Suspect]
  2. OXCARBAZEPINE [Suspect]

REACTIONS (4)
  - CONVULSION [None]
  - DISEASE RECURRENCE [None]
  - HYPONATRAEMIA [None]
  - STATUS EPILEPTICUS [None]
